FAERS Safety Report 6784676-X (Version None)
Quarter: 2010Q2

REPORT INFORMATION
  Report Type: 
  Country: None (occurrence: None)
  Receive Date: 20100622
  Receipt Date: 20100610
  Transmission Date: 20101027
  Serious: Yes (Other)
  Sender: FDA-Public Use
  Company Number: BE-PFIZER INC-2010073129

PATIENT
  Age: 49 Year
  Sex: Female

DRUGS (1)
  1. CHAMPIX [Suspect]
     Indication: SMOKING CESSATION THERAPY
     Dosage: 0.5 MG, 1X/DAY
     Route: 048
     Dates: start: 20100605, end: 20100609

REACTIONS (8)
  - DECREASED APPETITE [None]
  - DYSPHONIA [None]
  - DYSPNOEA [None]
  - GINGIVAL SWELLING [None]
  - HYPERSENSITIVITY [None]
  - OEDEMA MOUTH [None]
  - PHARYNGEAL OEDEMA [None]
  - SWOLLEN TONGUE [None]
